FAERS Safety Report 4955293-9 (Version None)
Quarter: 2006Q1

REPORT INFORMATION
  Report Type: 
  Country: None (occurrence: None)
  Receive Date: 20060328
  Receipt Date: 20060316
  Transmission Date: 20060701
  Serious: Yes (Hospitalization)
  Sender: FDA-Public Use
  Company Number: DE-AMGEN-UK172981

PATIENT
  Sex: Male
  Weight: 76 kg

DRUGS (13)
  1. KEPIVANCE [Suspect]
     Indication: MUCOSAL INFLAMMATION
     Route: 065
     Dates: start: 20060131, end: 20060217
  2. CYCLOSPORINE [Concomitant]
     Route: 065
     Dates: start: 20050213
  3. METHOTREXATE [Concomitant]
     Route: 065
     Dates: start: 20060215, end: 20060225
  4. THYMOGLOBULIN [Concomitant]
     Dates: start: 20060211, end: 20060213
  5. ACYCLOVIR [Concomitant]
  6. COTRIM [Concomitant]
  7. MERONEM [Concomitant]
  8. DIFLUCAN [Concomitant]
  9. VANCOMYCIN [Concomitant]
  10. AMBISOME [Concomitant]
  11. METRONIDAZOLE [Concomitant]
  12. PIPERACILLIN + TAZOBACTAM SODIUM [Concomitant]
  13. ENDOXAN [Concomitant]
     Route: 040
     Dates: start: 20060211, end: 20060212

REACTIONS (8)
  - CIRCUMSTANCE OR INFORMATION CAPABLE OF LEADING TO MEDICATION ERROR [None]
  - CLOSTRIDIAL INFECTION [None]
  - DIARRHOEA [None]
  - INCORRECT DRUG ADMINISTRATION DURATION [None]
  - MUCOSAL INFLAMMATION [None]
  - NAUSEA [None]
  - THERAPEUTIC RESPONSE DECREASED [None]
  - VOMITING [None]
